FAERS Safety Report 19819715 (Version 1)
Quarter: 2021Q3

REPORT INFORMATION
  Report Type: Report from Study
  Country: None (occurrence: CA)
  Receive Date: 20210913
  Receipt Date: 20210913
  Transmission Date: 20211014
  Serious: Yes (Other)
  Sender: FDA-Public Use
  Company Number: CA-ABBVIE-21K-028-4053520-00

PATIENT
  Age: 66 Year
  Sex: Male
  Weight: 86 kg

DRUGS (82)
  1. VENETOCLAX. [Suspect]
     Active Substance: VENETOCLAX
     Route: 048
     Dates: start: 20210713, end: 20210719
  2. ACYCLOVIR. [Concomitant]
     Active Substance: ACYCLOVIR
     Indication: PRODUCT USED FOR UNKNOWN INDICATION
     Dates: start: 20190227, end: 20210803
  3. CHLORTHALIDONE. [Concomitant]
     Active Substance: CHLORTHALIDONE
     Indication: PRODUCT USED FOR UNKNOWN INDICATION
     Dates: start: 20210202, end: 20210727
  4. AMLODIPINE [Concomitant]
     Active Substance: AMLODIPINE BESYLATE
     Dates: start: 20210726, end: 20210726
  5. AMLODIPINE [Concomitant]
     Active Substance: AMLODIPINE BESYLATE
     Dates: start: 20210729, end: 20210804
  6. NACL [Concomitant]
     Active Substance: SODIUM CHLORIDE
     Dosage: 0.9% BOLUS
     Dates: start: 20210729, end: 20210729
  7. NACL [Concomitant]
     Active Substance: SODIUM CHLORIDE
     Dosage: 0.9% BOLUS
     Dates: start: 20210731, end: 20210731
  8. POLYETHYLENE GLYCOL [Concomitant]
     Active Substance: POLYETHYLENE GLYCOLS
     Indication: PRODUCT USED FOR UNKNOWN INDICATION
     Dates: start: 20210707, end: 20210707
  9. NOREPINEPHRINE (LEVOPHED) IN 0.9% NACL [Concomitant]
     Indication: PRODUCT USED FOR UNKNOWN INDICATION
     Dates: start: 20210805, end: 20210806
  10. SPIRONOLACTONE. [Concomitant]
     Active Substance: SPIRONOLACTONE
     Indication: PRODUCT USED FOR UNKNOWN INDICATION
     Dates: start: 20210804, end: 20210806
  11. RANITIDINE HCL [Concomitant]
     Active Substance: RANITIDINE HYDROCHLORIDE
     Indication: PRODUCT USED FOR UNKNOWN INDICATION
     Dates: start: 20210803, end: 20210805
  12. PHYTONADIONE (VITAMIN K1) [Concomitant]
     Indication: PRODUCT USED FOR UNKNOWN INDICATION
     Dates: start: 20210803, end: 20210803
  13. HYDRALAZINE 10MG IN NACL 0.9% 50ML [Concomitant]
     Indication: PRODUCT USED FOR UNKNOWN INDICATION
     Dates: start: 20210729, end: 20210729
  14. VENETOCLAX. [Suspect]
     Active Substance: VENETOCLAX
     Route: 048
     Dates: start: 20210728, end: 20210730
  15. ACYCLOVIR. [Concomitant]
     Active Substance: ACYCLOVIR
     Dosage: SUSPENSION
     Dates: start: 20210804, end: 20210805
  16. SEPTRA [Concomitant]
     Active Substance: SULFAMETHOXAZOLE\TRIMETHOPRIM
     Indication: PRODUCT USED FOR UNKNOWN INDICATION
     Dates: start: 20190227, end: 20210802
  17. NACL [Concomitant]
     Active Substance: SODIUM CHLORIDE
     Indication: PRODUCT USED FOR UNKNOWN INDICATION
     Dosage: 0.9% BOLUS
     Dates: start: 20210707, end: 20210707
  18. NACL [Concomitant]
     Active Substance: SODIUM CHLORIDE
     Indication: PRODUCT USED FOR UNKNOWN INDICATION
     Dates: start: 20210704, end: 20210710
  19. RASBURICASE IN NACL 0.9% 50ML [Concomitant]
     Dates: start: 20210728, end: 20210728
  20. GRASTOFIL [Concomitant]
     Active Substance: FILGRASTIM
     Dates: start: 20210720, end: 20210721
  21. LACTATED RINGERS SOLUTION [Concomitant]
     Active Substance: CALCIUM CHLORIDE\POTASSIUM CHLORIDE\SODIUM CHLORIDE\SODIUM LACTATE
     Indication: PRODUCT USED FOR UNKNOWN INDICATION
     Dosage: BOLUS
     Dates: start: 20210725, end: 20210726
  22. POTASSIUM CHLORIDE (K?ELIXIR) [Concomitant]
     Dates: start: 20210804, end: 20210804
  23. CASPOFUNGIN 70MG IN NACL 0.9% 250ML [Concomitant]
     Indication: PRODUCT USED FOR UNKNOWN INDICATION
     Dates: start: 20210804, end: 20210804
  24. TAZOCIN 4.5G IN 0.9% NACL 100ML [Concomitant]
     Indication: PRODUCT USED FOR UNKNOWN INDICATION
     Dates: start: 20210804, end: 20210805
  25. RIFAXIMIN. [Concomitant]
     Active Substance: RIFAXIMIN
     Indication: PRODUCT USED FOR UNKNOWN INDICATION
     Dates: start: 20210804, end: 20210804
  26. TAZOCIN [Concomitant]
     Active Substance: PIPERACILLIN SODIUM\TAZOBACTAM SODIUM
     Indication: PRODUCT USED FOR UNKNOWN INDICATION
     Dates: start: 20210725, end: 20210805
  27. ISOVUE 370 [Concomitant]
     Active Substance: IOPAMIDOL
     Indication: PRODUCT USED FOR UNKNOWN INDICATION
     Dates: start: 20210726, end: 20210726
  28. METOPROLOL. [Concomitant]
     Active Substance: METOPROLOL
     Indication: PRODUCT USED FOR UNKNOWN INDICATION
     Dates: start: 20210709, end: 20210714
  29. IMBRUVICA [Concomitant]
     Active Substance: IBRUTINIB
     Indication: PRODUCT USED FOR UNKNOWN INDICATION
     Dates: start: 20210220, end: 20210720
  30. AMLODIPINE [Concomitant]
     Active Substance: AMLODIPINE BESYLATE
     Dates: start: 20210727, end: 20210727
  31. NACL [Concomitant]
     Active Substance: SODIUM CHLORIDE
     Dates: start: 20210805, end: 20210806
  32. POLYETHYLENE GLYCOL [Concomitant]
     Active Substance: POLYETHYLENE GLYCOLS
     Dates: start: 20210713, end: 20210713
  33. MIDAZOLAM. [Concomitant]
     Active Substance: MIDAZOLAM
     Indication: PRODUCT USED FOR UNKNOWN INDICATION
     Dates: start: 20210806, end: 20210806
  34. DEXTROSE. [Concomitant]
     Active Substance: DEXTROSE
     Indication: PRODUCT USED FOR UNKNOWN INDICATION
     Dates: start: 20210805, end: 20210806
  35. CASPOFUNGIN 70MG IN NACL 0.9% 250ML [Concomitant]
     Dates: start: 20210805, end: 20210805
  36. METOLAZONE. [Concomitant]
     Active Substance: METOLAZONE
     Indication: PRODUCT USED FOR UNKNOWN INDICATION
     Dates: start: 20210804, end: 20210804
  37. POTASSIUM CHLORIDE. [Concomitant]
     Active Substance: POTASSIUM CHLORIDE
     Indication: PRODUCT USED FOR UNKNOWN INDICATION
     Dates: start: 20210801, end: 20210801
  38. POTASSIUM CHLORIDE. [Concomitant]
     Active Substance: POTASSIUM CHLORIDE
     Dates: start: 20210802, end: 20210802
  39. HYDRALAZINE [Concomitant]
     Active Substance: HYDRALAZINE HYDROCHLORIDE
     Dates: start: 20210804, end: 20210804
  40. METOPROLOL. [Concomitant]
     Active Substance: METOPROLOL
     Dates: start: 20210715, end: 20210805
  41. ALLOPURINOL. [Concomitant]
     Active Substance: ALLOPURINOL
     Indication: PRODUCT USED FOR UNKNOWN INDICATION
     Dates: start: 20210623, end: 20210805
  42. NACL [Concomitant]
     Active Substance: SODIUM CHLORIDE
     Dosage: 0.9% BOLUS
     Dates: start: 20210727, end: 20210727
  43. NACL [Concomitant]
     Active Substance: SODIUM CHLORIDE
     Dates: start: 20210727, end: 20210729
  44. GRASTOFIL [Concomitant]
     Active Substance: FILGRASTIM
     Indication: PRODUCT USED FOR UNKNOWN INDICATION
     Dates: start: 20210715, end: 20210715
  45. GRASTOFIL [Concomitant]
     Active Substance: FILGRASTIM
     Dates: start: 20210726, end: 20210728
  46. ALBUMIN [Concomitant]
     Active Substance: ALBUMIN HUMAN
     Indication: PRODUCT USED FOR UNKNOWN INDICATION
     Dates: start: 20210805, end: 20210805
  47. SOLU?MEDROL [Concomitant]
     Active Substance: METHYLPREDNISOLONE SODIUM SUCCINATE
     Indication: PRODUCT USED FOR UNKNOWN INDICATION
     Dosage: 125MG/2ML
     Dates: start: 20210727, end: 20210727
  48. COVERSYL [Concomitant]
     Active Substance: PERINDOPRIL
     Indication: PRODUCT USED FOR UNKNOWN INDICATION
     Dates: start: 20191113, end: 20210803
  49. AMLODIPINE [Concomitant]
     Active Substance: AMLODIPINE BESYLATE
     Dates: start: 20210728, end: 20210728
  50. NACL [Concomitant]
     Active Substance: SODIUM CHLORIDE
     Dates: start: 20210726, end: 20210726
  51. MEROPENEM. [Concomitant]
     Active Substance: MEROPENEM
     Indication: PRODUCT USED FOR UNKNOWN INDICATION
     Dates: start: 20210805, end: 20210806
  52. PERIDEX [Concomitant]
     Active Substance: CHLORHEXIDINE GLUCONATE
     Indication: PRODUCT USED FOR UNKNOWN INDICATION
     Dosage: 0.12% SOLUTION
     Dates: start: 20210804, end: 20210804
  53. SODIUM BICARBONATE. [Concomitant]
     Active Substance: SODIUM BICARBONATE
     Indication: PRODUCT USED FOR UNKNOWN INDICATION
     Dates: start: 20210727, end: 20210730
  54. NACL [Concomitant]
     Active Substance: SODIUM CHLORIDE
     Indication: PRODUCT USED FOR UNKNOWN INDICATION
     Dosage: 0.9% FLUSH
     Dates: start: 20210726, end: 20210726
  55. TRAZODONE [Concomitant]
     Active Substance: TRAZODONE HYDROCHLORIDE
     Indication: PRODUCT USED FOR UNKNOWN INDICATION
     Dates: start: 20210427, end: 20210731
  56. AMLODIPINE [Concomitant]
     Active Substance: AMLODIPINE BESYLATE
     Indication: PRODUCT USED FOR UNKNOWN INDICATION
     Dates: start: 20191218, end: 20210710
  57. POTASSIUM CHLORIDE (K?ELIXIR) [Concomitant]
     Dates: start: 20210805, end: 20210805
  58. SODIUM BICARBONATE. [Concomitant]
     Active Substance: SODIUM BICARBONATE
     Dates: start: 20210731, end: 20210801
  59. NACL [Concomitant]
     Active Substance: SODIUM CHLORIDE
     Dosage: 0.9% FLUSH
     Dates: start: 20210729, end: 20210729
  60. HYDRALAZINE [Concomitant]
     Active Substance: HYDRALAZINE HYDROCHLORIDE
     Indication: PRODUCT USED FOR UNKNOWN INDICATION
     Dates: start: 20210729, end: 20210729
  61. VENETOCLAX. [Suspect]
     Active Substance: VENETOCLAX
     Indication: PRODUCT USED FOR UNKNOWN INDICATION
     Route: 048
     Dates: start: 20210706, end: 20210712
  62. VENETOCLAX. [Suspect]
     Active Substance: VENETOCLAX
     Route: 048
     Dates: start: 20210720, end: 20210727
  63. VENETOCLAX. [Suspect]
     Active Substance: VENETOCLAX
     Route: 048
     Dates: start: 20210731, end: 20210804
  64. NACL [Concomitant]
     Active Substance: SODIUM CHLORIDE
     Dates: start: 20210712, end: 20210715
  65. ALUMINIUM HYDROXIDE [Concomitant]
     Active Substance: ALUMINUM HYDROXIDE
     Indication: PRODUCT USED FOR UNKNOWN INDICATION
     Dates: start: 20210707, end: 20210710
  66. RASBURICASE IN NACL 0.9% 50ML [Concomitant]
     Indication: PRODUCT USED FOR UNKNOWN INDICATION
     Dates: start: 20210705, end: 20210705
  67. PROCHLORPERAZINE. [Concomitant]
     Active Substance: PROCHLORPERAZINE
     Indication: PRODUCT USED FOR UNKNOWN INDICATION
     Dates: start: 20210706, end: 20210706
  68. PROCHLORPERAZINE. [Concomitant]
     Active Substance: PROCHLORPERAZINE
     Dates: start: 20210726, end: 20210726
  69. SENNA [Concomitant]
     Active Substance: SENNA LEAF\SENNOSIDES\SENNOSIDES A AND B
     Indication: PRODUCT USED FOR UNKNOWN INDICATION
     Dates: start: 20210707, end: 20210707
  70. LACTATED RINGERS SOLUTION [Concomitant]
     Active Substance: CALCIUM CHLORIDE\POTASSIUM CHLORIDE\SODIUM CHLORIDE\SODIUM LACTATE
     Dosage: BOLUS
     Dates: start: 20210805, end: 20210805
  71. POTASSIUM CHLORIDE (K?ELIXIR) [Concomitant]
     Indication: PRODUCT USED FOR UNKNOWN INDICATION
     Dates: start: 20210729, end: 20210729
  72. POTASSIUM CHLORIDE (K?ELIXIR) [Concomitant]
     Dates: start: 20210731, end: 20210731
  73. FUROSEMIDE 40MG IN NACL 0.9% 10ML [Concomitant]
     Indication: PRODUCT USED FOR UNKNOWN INDICATION
     Dates: start: 20210804, end: 20210804
  74. LACTULOSE. [Concomitant]
     Active Substance: LACTULOSE
     Indication: PRODUCT USED FOR UNKNOWN INDICATION
     Dosage: 10G/15ML
     Dates: start: 20210801, end: 20210805
  75. TERAZOSIN [Concomitant]
     Active Substance: TERAZOSIN HYDROCHLORIDE
     Indication: PRODUCT USED FOR UNKNOWN INDICATION
     Dates: start: 20210729, end: 20210729
  76. SOLU?MEDROL 125MG IN NACL 0.9% 50ML [Concomitant]
     Indication: PRODUCT USED FOR UNKNOWN INDICATION
     Dates: start: 20210728, end: 20210731
  77. NACL [Concomitant]
     Active Substance: SODIUM CHLORIDE
     Dosage: 0.9% BOLUS
     Dates: start: 20210725, end: 20210725
  78. NACL [Concomitant]
     Active Substance: SODIUM CHLORIDE
     Dosage: 0.9% BOLUS
     Dates: start: 20210728, end: 20210728
  79. NACL [Concomitant]
     Active Substance: SODIUM CHLORIDE
     Dates: start: 20210719, end: 20210721
  80. NACL [Concomitant]
     Active Substance: SODIUM CHLORIDE
     Dates: start: 20210801, end: 20210804
  81. TERAZOSIN [Concomitant]
     Active Substance: TERAZOSIN HYDROCHLORIDE
     Dates: start: 20210730, end: 20210805
  82. ISOVUE 370 [Concomitant]
     Active Substance: IOPAMIDOL
     Dates: start: 20210729, end: 20210729

REACTIONS (3)
  - Blood fibrinogen decreased [Recovered/Resolved]
  - Hepatic failure [Unknown]
  - Sepsis [Unknown]

NARRATIVE: CASE EVENT DATE: 20210729
